FAERS Safety Report 10015739 (Version 1)
Quarter: 2014Q1

REPORT INFORMATION
  Report Type: Spontaneous
  Country: US (occurrence: US)
  Receive Date: 20140317
  Receipt Date: 20140317
  Transmission Date: 20141002
  Serious: Yes (Hospitalization)
  Sender: FDA-Public Use
  Company Number: US-MYLANLABS-2014S1005068

PATIENT
  Age: 17 Year
  Sex: Male

DRUGS (4)
  1. BUPROPION [Suspect]
     Indication: DRUG ABUSE
     Route: 048
  2. BUPROPION [Suspect]
     Indication: OFF LABEL USE
     Route: 048
  3. CITALOPRAM [Concomitant]
     Route: 048
  4. IBUPROFEN [Concomitant]
     Route: 048

REACTIONS (2)
  - Convulsion [Recovered/Resolved]
  - Drug abuse [Recovered/Resolved]
